FAERS Safety Report 7864867-7 (Version None)
Quarter: 2011Q4

REPORT INFORMATION
  Report Type: 
  Country: None (occurrence: None)
  Receive Date: 20111028
  Receipt Date: 20100908
  Transmission Date: 20120403
  Serious: No
  Sender: FDA-Public Use
  Company Number: US-GLAXOSMITHKLINE-A0880305A

PATIENT
  Sex: Female

DRUGS (6)
  1. VITAMIN TAB [Concomitant]
  2. ADVAIR DISKUS 100/50 [Suspect]
     Indication: ASTHMA
     Dosage: 1PUFF TWICE PER DAY
     Route: 055
     Dates: start: 20060101
  3. ALBUTEROL [Concomitant]
  4. IBUPROFEN (ADVIL) [Concomitant]
  5. SPIRIVA [Concomitant]
  6. OXYGEN [Concomitant]

REACTIONS (2)
  - ILL-DEFINED DISORDER [None]
  - DYSPNOEA [None]
